FAERS Safety Report 9420131 (Version 2)
Quarter: 2013Q3

REPORT INFORMATION
  Report Type: Spontaneous
  Country: FR (occurrence: FR)
  Receive Date: 20130725
  Receipt Date: 20130902
  Transmission Date: 20140515
  Serious: Yes (Hospitalization)
  Sender: FDA-Public Use
  Company Number: FR-BRISTOL-MYERS SQUIBB COMPANY-19118546

PATIENT
  Age: 88 Year
  Sex: Female

DRUGS (8)
  1. DAFALGAN CODEINE TABS [Suspect]
     Dosage: 1DF:1 TABS? FILM COATED TABS
     Route: 048
     Dates: start: 20130512, end: 20130521
  2. METFORMIN HCL [Suspect]
  3. ZOLPIDEM [Suspect]
     Indication: INSOMNIA
     Dates: end: 201305
  4. ATACAND [Concomitant]
     Dosage: SCORED TABLET
  5. MONO-TILDIEM [Concomitant]
  6. JANUVIA [Concomitant]
  7. INEXIUM [Concomitant]
     Dosage: GASTRO-RESISTANT TABLET
  8. FURADANTINE [Concomitant]

REACTIONS (1)
  - Confusional state [Recovered/Resolved]
